FAERS Safety Report 14002160 (Version 6)
Quarter: 2017Q4

REPORT INFORMATION
  Report Type: Report from Study
  Country: CO (occurrence: CO)
  Receive Date: 20170922
  Receipt Date: 20171122
  Transmission Date: 20180321
  Serious: Yes (Life-Threatening, Hospitalization, Other)
  Sender: FDA-Public Use
  Company Number: PHHY2017CO136879

PATIENT
  Age: 27 Year
  Sex: Female
  Weight: 86 kg

DRUGS (9)
  1. SIGNIFOR [Suspect]
     Active Substance: PASIREOTIDE
     Indication: CUSHING^S SYNDROME
     Dosage: 0.9 MG, BID
     Route: 058
     Dates: start: 20140421
  2. METFORMIN [Suspect]
     Active Substance: METFORMIN HYDROCHLORIDE
     Indication: PRODUCT USED FOR UNKNOWN INDICATION
     Dosage: 850 ML, TID
     Route: 065
  3. CEFALEXIN [Suspect]
     Active Substance: CEPHALEXIN
     Indication: PRODUCT USED FOR UNKNOWN INDICATION
     Dosage: UNK
     Route: 065
  4. SIGNIFOR [Suspect]
     Active Substance: PASIREOTIDE
     Dosage: 0.9 ML, UNK
     Route: 058
     Dates: start: 20170726, end: 20170826
  5. VITAMIN C [Suspect]
     Active Substance: ASCORBIC ACID
     Indication: PRODUCT USED FOR UNKNOWN INDICATION
     Route: 065
  6. SIGNIFOR [Suspect]
     Active Substance: PASIREOTIDE
     Dosage: 0.9 MG, UNK
     Route: 058
     Dates: start: 201703
  7. CARBAMAZEPINE. [Concomitant]
     Active Substance: CARBAMAZEPINE
     Indication: PRODUCT USED FOR UNKNOWN INDICATION
     Dosage: 200 ML, Q12H
     Route: 065
  8. ACETAMINOPHEN. [Concomitant]
     Active Substance: ACETAMINOPHEN
     Indication: PRODUCT USED FOR UNKNOWN INDICATION
     Dosage: UNK
     Route: 065
  9. OXINE [Concomitant]
     Indication: PRODUCT USED FOR UNKNOWN INDICATION
     Dosage: UNK
     Route: 065

REACTIONS (10)
  - Blood glucose decreased [Unknown]
  - Vomiting [Unknown]
  - Pelvic pain [Unknown]
  - Seizure [Unknown]
  - Urinary tract infection [Unknown]
  - Dizziness [Unknown]
  - Blood glucose increased [Unknown]
  - Arthralgia [Unknown]
  - Back pain [Unknown]
  - Pyrexia [Unknown]

NARRATIVE: CASE EVENT DATE: 20160917
